FAERS Safety Report 9210269 (Version 2)
Quarter: 2013Q2

REPORT INFORMATION
  Report Type: Spontaneous
  Country: BR (occurrence: BR)
  Receive Date: 20130404
  Receipt Date: 20130516
  Transmission Date: 20140414
  Serious: Yes (Other)
  Sender: FDA-Public Use
  Company Number: BR-ASTRAZENECA-2013SE20715

PATIENT
  Sex: Female
  Weight: 75 kg

DRUGS (5)
  1. ATACAND [Suspect]
     Route: 048
     Dates: start: 201203
  2. ATACAND HCT [Suspect]
     Dosage: 16/12.5 MG,UNKNOWN
     Route: 048
     Dates: start: 20130310, end: 201304
  3. UNSPECIFIED DIURETIC [Concomitant]
  4. PANTOPRAZOLE [Concomitant]
     Indication: GASTRITIS
  5. MOTILIUM [Concomitant]
     Indication: GASTRITIS

REACTIONS (2)
  - Blood pressure increased [Recovered/Resolved]
  - Blood pressure inadequately controlled [Unknown]
